FAERS Safety Report 8962158 (Version 1)
Quarter: 2012Q4

REPORT INFORMATION
  Report Type: 
  Country: US (occurrence: US)
  Receive Date: 20121212
  Receipt Date: 20121212
  Transmission Date: 20130627
  Serious: No
  Sender: FDA-Public Use
  Company Number: US-PFIZER INC-2012312000

PATIENT
  Age: 64 Year
  Sex: Female
  Weight: 70.3 kg

DRUGS (2)
  1. LIPITOR [Suspect]
     Indication: HIGH CHOLESTEROL
     Dosage: 20 mg, once a day
     Route: 048
     Dates: end: 20121130
  2. DIOVANE [Concomitant]
     Indication: BLOOD PRESSURE HIGH
     Dosage: UNK, once a day
     Dates: start: 2000

REACTIONS (1)
  - Head discomfort [Unknown]
